FAERS Safety Report 10064795 (Version 2)
Quarter: 2014Q2

REPORT INFORMATION
  Report Type: Report from Study
  Country: US (occurrence: US)
  Receive Date: 20140408
  Receipt Date: 20140523
  Transmission Date: 20141212
  Serious: Yes (Other)
  Sender: FDA-Public Use
  Company Number: US-JNJFOC-20140402948

PATIENT
  Sex: Female

DRUGS (6)
  1. INVOKANA [Suspect]
     Indication: PRODUCT USED FOR UNKNOWN INDICATION
     Route: 048
     Dates: end: 2014
  2. CYCLOSET [Concomitant]
     Indication: DIABETES MELLITUS
  3. LASIX [Concomitant]
     Indication: CARDIAC DISORDER
  4. CARVEDILOL [Concomitant]
     Indication: CARDIAC DISORDER
  5. WARFARIN [Concomitant]
     Indication: CARDIAC DISORDER
  6. ASPIRIN [Concomitant]
     Indication: CARDIAC DISORDER

REACTIONS (2)
  - Renal disorder [Unknown]
  - Cardiac disorder [Unknown]
